FAERS Safety Report 24388472 (Version 1)
Quarter: 2024Q4

REPORT INFORMATION
  Report Type: Spontaneous
  Country: US (occurrence: None)
  Receive Date: 20241002
  Receipt Date: 20241002
  Transmission Date: 20250115
  Serious: Yes (Death)
  Sender: Public
  Company Number: None

PATIENT
  Sex: Male

DRUGS (11)
  1. ABIRATERONE ACETATE [Suspect]
     Active Substance: ABIRATERONE ACETATE
     Indication: Prostate cancer
     Dosage: FREQ: TAKE 4 TABLET BY MOUTH EVERY MORNING BEFORE BREAKFAST
     Route: 048
     Dates: start: 20231024
  2. ALLOPURINOL TAB 100MG [Concomitant]
  3. ELIGARD INJ 45MG [Concomitant]
  4. FLOMAX CAP 0.4MG [Concomitant]
  5. KLONOPIN TAB 0.5MG [Concomitant]
  6. LEUPROLIDE INJ 22.5MG [Concomitant]
  7. LEVOTHYROXIN TAB 125MCG [Concomitant]
  8. LIPITOR TAB 40MG [Concomitant]
  9. METFORMIN TAB 100MG [Concomitant]
  10. OMEPRAZOLE TAB 20MG [Concomitant]
  11. PIOGLITAZONE TAB 30MG [Concomitant]

REACTIONS (1)
  - Neoplasm malignant [None]
